FAERS Safety Report 5713636-2 (Version None)
Quarter: 2008Q2

REPORT INFORMATION
  Report Type: 
  Country: None (occurrence: None)
  Receive Date: 20080422
  Receipt Date: 20080414
  Transmission Date: 20081010
  Serious: Yes (Hospitalization, Disabling, Other)
  Sender: FDA-Public Use
  Company Number: US-MERCK-0705USA01416

PATIENT
  Age: 70 Year
  Sex: Female

DRUGS (7)
  1. FOSAMAX [Suspect]
     Indication: OSTEOPOROSIS
     Route: 048
     Dates: start: 19960101, end: 20050201
  2. HORMONES (UNSPECIFIED) [Concomitant]
     Route: 065
     Dates: start: 19930101, end: 19980101
  3. [THERAPY UNSPECIFIED] [Concomitant]
     Indication: HYPERTENSION
     Route: 065
     Dates: start: 19890101
  4. CORTICOSTEROIDS (UNSPECIFIED) [Concomitant]
     Route: 065
     Dates: start: 19980101, end: 20071101
  5. COUMADIN [Concomitant]
     Indication: ANTICOAGULANT THERAPY
     Route: 065
     Dates: start: 19890101
  6. NORVASC [Concomitant]
     Indication: HYPERTENSION
     Route: 065
     Dates: start: 19980101
  7. DIPYRIDAMOLE [Concomitant]
     Route: 065
     Dates: start: 19890101

REACTIONS (24)
  - ANGIOPATHY [None]
  - ANXIETY [None]
  - ASTHMA [None]
  - BLOOD CHOLESTEROL INCREASED [None]
  - DEHYDRATION [None]
  - DEPRESSION [None]
  - DIARRHOEA [None]
  - DRY MOUTH [None]
  - EATING DISORDER [None]
  - FACIAL PAIN [None]
  - GINGIVAL DISORDER [None]
  - INFECTION [None]
  - IRRITABLE BOWEL SYNDROME [None]
  - JAW FRACTURE [None]
  - MASTICATION DISORDER [None]
  - MOUTH ULCERATION [None]
  - OSTEOMYELITIS [None]
  - OSTEONECROSIS [None]
  - PAIN IN JAW [None]
  - RESORPTION BONE INCREASED [None]
  - SPEECH DISORDER [None]
  - SWELLING [None]
  - SWELLING FACE [None]
  - TOOTH DISORDER [None]
